FAERS Safety Report 5208085-X (Version None)
Quarter: 2007Q1

REPORT INFORMATION
  Report Type: 
  Country: None (occurrence: None)
  Receive Date: 20070115
  Receipt Date: 20070105
  Transmission Date: 20070707
  Serious: Yes (Other)
  Sender: FDA-Public Use
  Company Number: FR-BAYER-200610928BFR

PATIENT
  Age: 69 Year
  Sex: Male
  Weight: 75 kg

DRUGS (14)
  1. MOXIFLOXACIN HYDROCHLORIDE [Suspect]
     Indication: OSTEITIS
     Dosage: TOTAL DAILY DOSE: 800 MG  UNIT DOSE: 400 MG
     Route: 048
     Dates: start: 20051229, end: 20060130
  2. MOXIFLOXACIN HYDROCHLORIDE [Suspect]
     Dosage: TOTAL DAILY DOSE: 800 MG  UNIT DOSE: 400 MG
     Route: 048
     Dates: start: 20060210, end: 20060310
  3. CIPROFLOXACIN [Suspect]
     Indication: OSTEITIS
     Dosage: TOTAL DAILY DOSE: 2000 MG  UNIT DOSE: 500 MG
     Route: 048
     Dates: start: 20060310, end: 20060411
  4. GLUCOPHAGE [Concomitant]
     Indication: DIABETES MELLITUS NON-INSULIN-DEPENDENT
     Dosage: TOTAL DAILY DOSE: 3 G  UNIT DOSE: 1 G
     Route: 048
  5. HEMIGOXINE [Concomitant]
     Indication: UNEVALUABLE EVENT
  6. FORTUM [Concomitant]
     Indication: OSTEITIS
     Dates: start: 20051229, end: 20060201
  7. RIFADIN [Concomitant]
     Indication: OSTEITIS
     Dosage: TOTAL DAILY DOSE: 1200 MG  UNIT DOSE: 300 MG
     Dates: start: 20051229
  8. FOZITEC [Concomitant]
     Indication: UNEVALUABLE EVENT
     Dosage: TOTAL DAILY DOSE: 10 MG  UNIT DOSE: 10 MG
  9. PREVISCAN [Concomitant]
     Indication: UNEVALUABLE EVENT
  10. GLIMEPIRIDE [Concomitant]
     Indication: UNEVALUABLE EVENT
     Dosage: TOTAL DAILY DOSE: 3 MG  UNIT DOSE: 3 MG
  11. ALLOPURINOL SODIUM [Concomitant]
     Indication: UNEVALUABLE EVENT
     Dosage: TOTAL DAILY DOSE: 100 MG  UNIT DOSE: 100 MG
  12. PRAXILENE [Concomitant]
     Indication: UNEVALUABLE EVENT
     Dosage: TOTAL DAILY DOSE: 400 MG  UNIT DOSE: 200 MG
  13. DIAMICRON [Concomitant]
     Indication: DIABETES MELLITUS NON-INSULIN-DEPENDENT
     Dosage: TOTAL DAILY DOSE: 30 MG  UNIT DOSE: 30 MG
  14. CLAMOXYL [Concomitant]
     Indication: OSTEITIS

REACTIONS (7)
  - AGRANULOCYTOSIS [None]
  - ASTHENIA [None]
  - BLOOD CREATINE PHOSPHOKINASE INCREASED [None]
  - HYPERKALAEMIA [None]
  - MYALGIA [None]
  - OESOPHAGEAL CANDIDIASIS [None]
  - POLYMYOSITIS [None]
